FAERS Safety Report 19088252 (Version 3)
Quarter: 2021Q2

REPORT INFORMATION
  Report Type: Report from Study
  Country: US (occurrence: US)
  Receive Date: 20210402
  Receipt Date: 20210429
  Transmission Date: 20210717
  Serious: Yes (Death)
  Sender: FDA-Public Use
  Company Number: US-PFIZER INC-2021351428

PATIENT
  Age: 52 Year
  Sex: Female
  Weight: 65.6 kg

DRUGS (6)
  1. FULVESTRANT. [Suspect]
     Active Substance: FULVESTRANT
     Indication: DRUG TOXICITY PROPHYLAXIS
     Dosage: 500 MG, MONTHLY
     Route: 030
     Dates: start: 20200619
  2. PALBOCICLIB [Suspect]
     Active Substance: PALBOCICLIB
     Indication: BREAST CANCER RECURRENT
     Dosage: 75 MG, DAILY FOR 21 DAYS
     Route: 048
     Dates: start: 20190416, end: 20190912
  3. PALBOCICLIB [Suspect]
     Active Substance: PALBOCICLIB
     Indication: BREAST CANCER STAGE IV
     Dosage: 125 MG, DAILY FOR 21 DAYS
     Route: 048
     Dates: start: 20190208, end: 20190329
  4. LETROZOLE. [Concomitant]
     Active Substance: LETROZOLE
     Indication: BREAST CANCER STAGE IV
  5. PALBOCICLIB [Suspect]
     Active Substance: PALBOCICLIB
     Dosage: 75 MG, DAILY EVERY OTHER WEEK
     Route: 048
     Dates: start: 20190416, end: 20200114
  6. LETROZOLE. [Concomitant]
     Active Substance: LETROZOLE
     Indication: BREAST CANCER RECURRENT
     Dosage: 2.5 MG, DAILY
     Route: 048
     Dates: start: 20190201, end: 20200305

REACTIONS (2)
  - Cardiac arrest [Fatal]
  - Hypovolaemic shock [Fatal]

NARRATIVE: CASE EVENT DATE: 20201111
